FAERS Safety Report 5052192-1 (Version None)
Quarter: 2006Q3

REPORT INFORMATION
  Report Type: 
  Country: None (occurrence: None)
  Receive Date: 20060714
  Receipt Date: 20060714
  Transmission Date: 20061208
  Serious: Yes (Other)
  Sender: FDA-Public Use
  Company Number: None

PATIENT
  Sex: Male

DRUGS (3)
  1. ENBREL [Suspect]
     Indication: PSORIATIC ARTHROPATHY
     Dosage: SEE IMAGE
     Dates: start: 20060410, end: 20060610
  2. ENBREL [Suspect]
     Indication: PSORIATIC ARTHROPATHY
     Dosage: SEE IMAGE
     Dates: start: 20060611, end: 20060710
  3. ENBREL [Suspect]

REACTIONS (3)
  - DISEASE RECURRENCE [None]
  - KIDNEY INFECTION [None]
  - NEPHROLITHIASIS [None]
